FAERS Safety Report 6691389-1 (Version None)
Quarter: 2010Q2

REPORT INFORMATION
  Report Type: 
  Country: None (occurrence: None)
  Receive Date: 20100422
  Receipt Date: 20100414
  Transmission Date: 20101027
  Serious: Yes (Other)
  Sender: FDA-Public Use
  Company Number: US-WYE-H14601610

PATIENT
  Age: 36 Year
  Sex: Male
  Weight: 79.45 kg

DRUGS (1)
  1. ALAVERT [Suspect]
     Indication: HYPERSENSITIVITY
     Route: 048
     Dates: start: 20100411

REACTIONS (4)
  - LOCAL SWELLING [None]
  - RASH [None]
  - SWELLING FACE [None]
  - WHEEZING [None]
